FAERS Safety Report 8360980-9 (Version None)
Quarter: 2012Q2

REPORT INFORMATION
  Report Type: 
  Country: None (occurrence: None)
  Receive Date: 20120515
  Receipt Date: 20120514
  Transmission Date: 20120825
  Serious: No
  Sender: FDA-Public Use
  Company Number: US-PFIZER INC-2012116933

PATIENT
  Sex: Female
  Weight: 74.83 kg

DRUGS (8)
  1. CHANTIX [Suspect]
     Dosage: UNK
     Route: 048
     Dates: end: 20120501
  2. ATENOLOL [Concomitant]
     Indication: HYPERTENSION
     Dosage: 100 MG,DAILY
  3. TYLENOL W/ CODEINE NO. 3 [Concomitant]
     Indication: ARTHRITIS
     Dosage: UNK
  4. SIMVASTATIN [Concomitant]
     Indication: BLOOD CHOLESTEROL ABNORMAL
     Dosage: 40 MG, UNK
  5. TYLENOL (CAPLET) [Concomitant]
     Indication: PAIN
     Dosage: 300 MG, UNK
  6. CHANTIX [Suspect]
     Indication: SMOKING CESSATION THERAPY
     Dosage: 0.5 MG, DAILY
     Route: 048
  7. MAXZIDE [Concomitant]
     Indication: HYPERTENSION
     Dosage: UNK
  8. RANITIDINE [Concomitant]
     Indication: GASTROOESOPHAGEAL REFLUX DISEASE
     Dosage: 150 MG, 2X/DAY

REACTIONS (4)
  - ABNORMAL DREAMS [None]
  - INSOMNIA [None]
  - GAIT DISTURBANCE [None]
  - MEMORY IMPAIRMENT [None]
